FAERS Safety Report 4617892-3 (Version None)
Quarter: 2005Q1

REPORT INFORMATION
  Report Type: 
  Country: None (occurrence: None)
  Receive Date: 20050322
  Receipt Date: 20050309
  Transmission Date: 20050727
  Serious: Yes (Hospitalization)
  Sender: FDA-Public Use
  Company Number: 2004236576JP

PATIENT
  Age: 72 Year
  Sex: Male

DRUGS (8)
  1. CABERGOLINE [Suspect]
     Indication: PARKINSON'S DISEASE
     Dosage: 2 MG, ORAL
     Route: 048
     Dates: start: 20020711
  2. SELEGILINE HYDROCHLORIDE [Concomitant]
  3. TRIHEXYPHENIDYL HCL [Concomitant]
  4. AMLODIPINE BESYLATE [Concomitant]
  5. SINEMET [Concomitant]
  6. MADOPAR (BENSERAZIDE HYDROCHLORIDE, LEVODOPA) [Concomitant]
  7. ETIZOLAM [Concomitant]
  8. DROXIDOPA [Concomitant]

REACTIONS (7)
  - AKINESIA [None]
  - CARDIAC FAILURE [None]
  - DYSKINESIA [None]
  - DYSPNOEA EXERTIONAL [None]
  - OEDEMA PERIPHERAL [None]
  - PLEURAL EFFUSION [None]
  - WEIGHT INCREASED [None]
